FAERS Safety Report 7134053-7 (Version None)
Quarter: 2010Q4

REPORT INFORMATION
  Report Type: 
  Country: None (occurrence: None)
  Receive Date: 20101203
  Receipt Date: 20101129
  Transmission Date: 20110411
  Serious: Yes (Life-Threatening, Hospitalization)
  Sender: FDA-Public Use
  Company Number: JP-JNJFOC-20101201179

PATIENT
  Age: 92 Year
  Sex: Female

DRUGS (1)
  1. DUROTEP MT [Suspect]
     Indication: ARTHRALGIA
     Route: 062

REACTIONS (1)
  - CEREBRAL INFARCTION [None]
